FAERS Safety Report 8772623 (Version 3)
Quarter: 2013Q4

REPORT INFORMATION
  Report Type: Report from Study
  Country: JP (occurrence: JP)
  Receive Date: 20120905
  Receipt Date: 20131002
  Transmission Date: 20140711
  Serious: Yes (Other)
  Sender: FDA-Public Use
  Company Number: JP-VERTEX PHARMACEUTICAL INC.-2012-020490

PATIENT
  Age: 68 Year
  Sex: Female

DRUGS (9)
  1. VX-950 (TELAPREVIR) [Suspect]
     Indication: CHRONIC HEPATITIS C
     Dosage: 1500 MG, QD
     Route: 048
     Dates: start: 20120511, end: 20120622
  2. VX-950 (TELAPREVIR) [Suspect]
     Dosage: 500 MG, QD
     Route: 048
     Dates: start: 20120622, end: 20120706
  3. REBETOL [Suspect]
     Indication: CHRONIC HEPATITIS C
     Dosage: 800 MG, UNK
     Route: 048
     Dates: start: 20120511, end: 20120518
  4. REBETOL [Suspect]
     Dosage: 600 MG, UNK
     Route: 048
     Dates: start: 20120518, end: 20120522
  5. REBETOL [Suspect]
     Dosage: 400 MG, UNK
     Route: 048
     Dates: start: 20120525, end: 20120622
  6. REBETOL [Suspect]
     Dosage: 200 MG, UNK
     Route: 048
     Dates: start: 20120622
  7. PEGINTRON [Suspect]
     Indication: CHRONIC HEPATITIS C
     Dosage: 100 ?G, WEEKLY
     Route: 058
     Dates: start: 20120511, end: 20120629
  8. PEGINTRON [Suspect]
     Dosage: 50 ?G,WEEKLY
     Route: 058
     Dates: start: 20120629, end: 20120706
  9. PEGINTRON [Suspect]
     Dosage: 80 ?G,WEEKLY
     Route: 058
     Dates: start: 20120713

REACTIONS (2)
  - Decreased appetite [Recovered/Resolved]
  - Anaemia [Not Recovered/Not Resolved]
